FAERS Safety Report 11377657 (Version 1)
Quarter: 2015Q3

REPORT INFORMATION
  Report Type: Spontaneous
  Country: US (occurrence: US)
  Receive Date: 20150811
  Receipt Date: 20150811
  Transmission Date: 20151125
  Serious: No
  Sender: FDA-Public Use
  Company Number: US-ELI_LILLY_AND_COMPANY-US200907000510

PATIENT
  Age: 40 Year
  Sex: Female
  Weight: 115.65 kg

DRUGS (3)
  1. HUMULIN 70/30 [Suspect]
     Active Substance: INSULIN HUMAN
     Indication: TYPE 2 DIABETES MELLITUS
     Dosage: 30 U, 2/D
  2. GLYBURIDE. [Concomitant]
     Active Substance: GLYBURIDE
     Indication: TYPE 2 DIABETES MELLITUS
     Dosage: 5 MG, DAILY (1/D)
  3. BYETTA [Concomitant]
     Active Substance: EXENATIDE
     Indication: TYPE 2 DIABETES MELLITUS
     Dosage: 0.25 MG, UNK
     Dates: start: 20090617, end: 20090617

REACTIONS (6)
  - Dizziness [Unknown]
  - Blood glucose decreased [Unknown]
  - Head discomfort [Unknown]
  - Nausea [Unknown]
  - Tremor [Unknown]
  - Anxiety [Unknown]

NARRATIVE: CASE EVENT DATE: 20090617
